FAERS Safety Report 15941975 (Version 1)
Quarter: 2019Q1

REPORT INFORMATION
  Report Type: Report from Study
  Country: US (occurrence: US)
  Receive Date: 20190209
  Receipt Date: 20190209
  Transmission Date: 20190417
  Serious: Yes (Other)
  Sender: FDA-Public Use
  Company Number: US-ROCHE-2047776

PATIENT
  Sex: Female

DRUGS (1)
  1. VALGANCICLOVIR. [Suspect]
     Active Substance: VALGANCICLOVIR
     Indication: LUNG TRANSPLANT
     Route: 048
     Dates: start: 20190122

REACTIONS (3)
  - Off label use [Unknown]
  - Cytomegalovirus infection [Unknown]
  - Intentional product use issue [Unknown]
